FAERS Safety Report 16970254 (Version 1)
Quarter: 2019Q4

REPORT INFORMATION
  Report Type: Report from Study
  Country: PK (occurrence: PK)
  Receive Date: 20191029
  Receipt Date: 20191029
  Transmission Date: 20200122
  Serious: Yes (Death)
  Sender: FDA-Public Use
  Company Number: NVSC2019PK018669

PATIENT
  Age: 45 Year
  Sex: Male
  Weight: 51 kg

DRUGS (1)
  1. GLIVEC [Suspect]
     Active Substance: IMATINIB MESYLATE
     Indication: CHRONIC MYELOID LEUKAEMIA
     Dosage: 6 DF, QD
     Route: 048
     Dates: start: 20180418

REACTIONS (4)
  - White blood cell count decreased [Unknown]
  - Death [Fatal]
  - Platelet count increased [Unknown]
  - Haemoglobin decreased [Unknown]

NARRATIVE: CASE EVENT DATE: 20190712
